FAERS Safety Report 4936426-7 (Version None)
Quarter: 2006Q1

REPORT INFORMATION
  Report Type: 
  Country: None (occurrence: None)
  Receive Date: 20060307
  Receipt Date: 20060227
  Transmission Date: 20060701
  Serious: Yes (Hospitalization)
  Sender: FDA-Public Use
  Company Number: JP-JNJFOC-20060102098

PATIENT
  Sex: Female
  Weight: 35 kg

DRUGS (13)
  1. REMICADE [Suspect]
     Route: 042
  2. REMICADE [Suspect]
     Route: 042
  3. REMICADE [Suspect]
     Route: 042
  4. REMICADE [Suspect]
     Route: 042
  5. REMICADE [Suspect]
     Route: 042
  6. REMICADE [Suspect]
     Route: 042
  7. REMICADE [Suspect]
     Route: 042
  8. REMICADE [Suspect]
     Route: 042
  9. REMICADE [Suspect]
     Route: 042
  10. REMICADE [Suspect]
     Indication: CROHN'S DISEASE
     Route: 042
  11. PENTASA [Concomitant]
     Indication: CROHN'S DISEASE
     Route: 048
  12. GASTER [Concomitant]
     Indication: CROHN'S DISEASE
     Route: 048
  13. RACOL ENTERAL NUTRITION [Concomitant]
     Indication: CROHN'S DISEASE
     Route: 048

REACTIONS (5)
  - ABDOMINAL ABSCESS [None]
  - DIARRHOEA [None]
  - INTESTINAL STENOSIS [None]
  - INTESTINAL ULCER [None]
  - NASOPHARYNGITIS [None]
